FAERS Safety Report 6305784-3 (Version None)
Quarter: 2009Q3

REPORT INFORMATION
  Report Type: 
  Country: None (occurrence: None)
  Receive Date: 20090812
  Receipt Date: 20070918
  Transmission Date: 20100115
  Serious: Yes (Hospitalization, Other)
  Sender: FDA-Public Use
  Company Number: US-ASTRAZENECA-2007UW02670

PATIENT
  Age: 145 Month
  Sex: Female
  Weight: 51.6 kg

DRUGS (7)
  1. SEROQUEL [Suspect]
     Indication: ABNORMAL BEHAVIOUR
     Route: 048
     Dates: start: 20040401, end: 20050501
  2. SEROQUEL [Suspect]
     Indication: DEPRESSION
     Route: 048
     Dates: start: 20040401, end: 20050501
  3. SEROQUEL [Suspect]
     Route: 048
     Dates: start: 20040403
  4. SEROQUEL [Suspect]
     Route: 048
     Dates: start: 20040403
  5. ZOLOFT [Concomitant]
     Indication: DEPRESSIVE SYMPTOM
     Dosage: 50-100 MG
     Route: 048
     Dates: start: 20031021
  6. LEXAPRO [Concomitant]
     Dosage: DISPENSED 10 MG
     Route: 048
     Dates: start: 20040413
  7. TOPAMAX [Concomitant]
     Dosage: DISPENSED 50 MG
     Route: 048
     Dates: start: 20040413

REACTIONS (13)
  - AUTOIMMUNE THYROIDITIS [None]
  - DIABETES MELLITUS [None]
  - DIABETES MELLITUS INADEQUATE CONTROL [None]
  - DIABETIC COMA [None]
  - DIABETIC COMPLICATION [None]
  - DIABETIC KETOACIDOSIS [None]
  - HAEMATURIA [None]
  - HEADACHE [None]
  - HYPOTHYROIDISM [None]
  - LACERATION [None]
  - THERMAL BURN [None]
  - TYPE 1 DIABETES MELLITUS [None]
  - URINARY TRACT INFECTION [None]
